FAERS Safety Report 11442354 (Version 3)
Quarter: 2015Q4

REPORT INFORMATION
  Report Type: Spontaneous
  Country: BR (occurrence: BR)
  Receive Date: 20150901
  Receipt Date: 20151210
  Transmission Date: 20160304
  Serious: Yes (Other)
  Sender: FDA-Public Use
  Company Number: BR-BAUSCH-BL-2015-020632

PATIENT
  Age: 42 Year
  Sex: Male

DRUGS (2)
  1. ELIDEL [Suspect]
     Active Substance: PIMECROLIMUS
     Indication: ECZEMA
  2. ELIDEL [Suspect]
     Active Substance: PIMECROLIMUS
     Indication: DERMATITIS
     Dosage: WHEN IT WAS NECESSARY AT THE TIME OF?EPISODES: WEEKLY OR FORTNIGHTLY
     Route: 061

REACTIONS (9)
  - Eczema [Unknown]
  - Product distribution issue [Unknown]
  - Drug dependence [Unknown]
  - Skin lesion [Unknown]
  - Condition aggravated [Unknown]
  - Emphysema [Unknown]
  - Wound [Unknown]
  - Dermatitis [Unknown]
  - Anxiety [Unknown]
